FAERS Safety Report 9361002 (Version 1)
Quarter: 2013Q2

REPORT INFORMATION
  Report Type: Spontaneous
  Country: VE (occurrence: VE)
  Receive Date: 20130621
  Receipt Date: 20130621
  Transmission Date: 20140414
  Serious: Yes (Other)
  Sender: FDA-Public Use
  Company Number: VE-PFIZER INC-2013185951

PATIENT
  Age: 52 Year
  Sex: Female

DRUGS (3)
  1. LYRICA [Suspect]
     Dosage: 75 MG, 2X/DAY
  2. TOPERMA [Concomitant]
     Dosage: UNK
  3. B-COMPLEX VITAMIN [Concomitant]
     Dosage: UNK

REACTIONS (2)
  - Tendonitis [Unknown]
  - Back pain [Unknown]
